FAERS Safety Report 9521562 (Version 4)
Quarter: 2014Q1

REPORT INFORMATION
  Report Type: Spontaneous
  Country: GB (occurrence: GB)
  Receive Date: 20130913
  Receipt Date: 20140102
  Transmission Date: 20141002
  Serious: Yes (Hospitalization)
  Sender: FDA-Public Use
  Company Number: GB-AMGEN-GBRSP2013064054

PATIENT
  Age: 36 Year
  Sex: Female
  Weight: 65 kg

DRUGS (5)
  1. NEULASTA [Suspect]
     Indication: BREAST CANCER STAGE III
     Dosage: 6 MG, ^STAT^
     Route: 058
     Dates: start: 20130116
  2. FILGRASTIM [Concomitant]
     Dosage: UNK
  3. ADRIAMYCIN                         /00330901/ [Concomitant]
     Indication: BREAST CANCER
     Dosage: 104 MG, Q2/52
     Route: 042
     Dates: start: 20130115, end: 20130304
  4. CYCLOPHOSPHAMIDE [Concomitant]
     Indication: BREAST CANCER
     Dosage: 1050 MG, Q2/52
     Route: 042
     Dates: start: 20130115, end: 20130304
  5. PACLITAXEL [Concomitant]
     Indication: BREAST CANCER
     Dosage: 308 MG, Q2/52
     Route: 042
     Dates: start: 20130325, end: 20130522

REACTIONS (4)
  - Febrile neutropenia [Recovered/Resolved]
  - White blood cell count abnormal [Unknown]
  - Respiratory tract infection [Unknown]
  - Drug ineffective [Unknown]
